FAERS Safety Report 13651793 (Version 2)
Quarter: 2017Q3

REPORT INFORMATION
  Report Type: Spontaneous
  Country: US (occurrence: US)
  Receive Date: 20170614
  Receipt Date: 20170721
  Transmission Date: 20171127
  Serious: No
  Sender: FDA-Public Use
  Company Number: US-BIOMARINAP-US-2017-114281

PATIENT
  Sex: Male
  Weight: 107.5 kg

DRUGS (1)
  1. KUVAN [Suspect]
     Active Substance: SAPROPTERIN DIHYDROCHLORIDE
     Indication: PHENYLKETONURIA
     Dosage: 2100 MG, QD
     Route: 048
     Dates: start: 20161019

REACTIONS (2)
  - Aggression [Recovered/Resolved]
  - Treatment noncompliance [Recovered/Resolved]
